FAERS Safety Report 25260982 (Version 1)
Quarter: 2025Q2

REPORT INFORMATION
  Report Type: Spontaneous
  Country: US (occurrence: US)
  Receive Date: 20250501
  Receipt Date: 20250501
  Transmission Date: 20250716
  Serious: No
  Sender: Tarsus Pharmaceuticals
  Company Number: US-TARSUS PHARMACEUTICALS-TSP-US-2025-000245

PATIENT

DRUGS (1)
  1. XDEMVY [Suspect]
     Active Substance: LOTILANER
     Indication: Blepharitis
     Route: 047
     Dates: start: 202411, end: 20241127

REACTIONS (4)
  - Visual impairment [Unknown]
  - Road traffic accident [Unknown]
  - Therapy interrupted [Unknown]
  - Product storage error [Unknown]
